FAERS Safety Report 4697926-0 (Version None)
Quarter: 2005Q2

REPORT INFORMATION
  Report Type: 
  Country: None (occurrence: None)
  Receive Date: 20050623
  Receipt Date: 20050620
  Transmission Date: 20051028
  Serious: Yes (Hospitalization)
  Sender: FDA-Public Use
  Company Number: GB-BOEHRINGER INGELHEIM PHARMACEUTICALS, INC.-2005-UK-01115NV

PATIENT
  Sex: Male

DRUGS (4)
  1. MICARDIS PLUS (EU/1/02/213/001-010) [Suspect]
  2. SIMVASTATIN [Suspect]
  3. PENICILLIN V [Concomitant]
  4. GLIMEPIRIDE [Concomitant]

REACTIONS (1)
  - GLOMERULONEPHRITIS [None]
